FAERS Safety Report 15837537 (Version 3)
Quarter: 2019Q4

REPORT INFORMATION
  Report Type: Spontaneous
  Country: FR (occurrence: FR)
  Receive Date: 20190117
  Receipt Date: 20191021
  Transmission Date: 20200122
  Serious: Yes (Death, Hospitalization, Other)
  Sender: FDA-Public Use
  Company Number: FR-009507513-1901FRA005560

PATIENT
  Sex: Female

DRUGS (1)
  1. MERCILON [Suspect]
     Active Substance: DESOGESTREL\ETHINYL ESTRADIOL
     Indication: CONTRACEPTION
     Dosage: UNK
     Route: 048
     Dates: start: 200909

REACTIONS (5)
  - Subdural haematoma [Unknown]
  - Death [Fatal]
  - Brain oedema [Unknown]
  - Cerebral venous thrombosis [Unknown]
  - Meningorrhagia [Unknown]

NARRATIVE: CASE EVENT DATE: 201203
